FAERS Safety Report 9955754 (Version 1)
Quarter: 2014Q1

REPORT INFORMATION
  Report Type: Report from Study
  Country: US (occurrence: US)
  Receive Date: 20140304
  Receipt Date: 20140304
  Transmission Date: 20141002
  Serious: No
  Sender: FDA-Public Use
  Company Number: US-ABBVIE-13P-163-1087111-00

PATIENT
  Age: 54 Year
  Sex: Female

DRUGS (5)
  1. HUMIRA [Suspect]
     Indication: CROHN^S DISEASE
     Route: 058
  2. HUMIRA [Suspect]
     Indication: PSORIASIS
  3. LOSARTAN [Concomitant]
     Indication: HYPERTENSION
     Dosage: DAILY
  4. NORVASC [Concomitant]
     Indication: HYPERTENSION
     Dosage: DAILY
  5. LEXAPRO [Concomitant]
     Indication: ANXIETY
     Dosage: DAILY

REACTIONS (4)
  - Feeling cold [Not Recovered/Not Resolved]
  - Hypoaesthesia [Not Recovered/Not Resolved]
  - Sluggishness [Not Recovered/Not Resolved]
  - Dyspnoea [Not Recovered/Not Resolved]
